FAERS Safety Report 26167633 (Version 1)
Quarter: 2025Q4

REPORT INFORMATION
  Report Type: Spontaneous
  Country: US (occurrence: US)
  Receive Date: 20251217
  Receipt Date: 20251217
  Transmission Date: 20260117
  Serious: Yes (Other)
  Sender: PACIRA
  Company Number: US-ORG100016242-2025000161

PATIENT

DRUGS (5)
  1. EXPAREL [Suspect]
     Active Substance: BUPIVACAINE
     Indication: Product used for unknown indication
     Dosage: NOT PROVIDED
  2. ROPIVACAINE [Suspect]
     Active Substance: ROPIVACAINE
     Indication: Product used for unknown indication
     Dosage: NOT PROVIDED
  3. EPINEPHRINE [Suspect]
     Active Substance: EPINEPHRINE
     Indication: Product used for unknown indication
     Dosage: NOT PROVIDED
  4. CLONIDINE [Suspect]
     Active Substance: CLONIDINE
     Indication: Product used for unknown indication
     Dosage: NOT PROVIDED
  5. KETOROLAC [Suspect]
     Active Substance: KETOROLAC TROMETHAMINE
     Indication: Product used for unknown indication
     Dosage: NOT PROVIDED

REACTIONS (2)
  - Local anaesthetic systemic toxicity [Unknown]
  - Labelled drug-drug interaction medication error [Unknown]
